FAERS Safety Report 21500692 (Version 3)
Quarter: 2022Q4

REPORT INFORMATION
  Report Type: Report from Study
  Country: US (occurrence: US)
  Receive Date: 20221025
  Receipt Date: 20221209
  Transmission Date: 20230113
  Serious: No
  Sender: FDA-Public Use
  Company Number: US-ABBVIE-4149767

PATIENT
  Sex: Male

DRUGS (5)
  1. IMBRUVICA [Suspect]
     Active Substance: IBRUTINIB
     Indication: Waldenstrom^s macroglobulinaemia
     Dosage: EVENT ONSET DATE 2022
     Route: 048
     Dates: start: 20220818
  2. IMBRUVICA [Suspect]
     Active Substance: IBRUTINIB
     Indication: Waldenstrom^s macroglobulinaemia
     Dosage: EVENT ONSET DATE 2022
     Route: 048
  3. MODERNA COVID-19 VACCINE [Concomitant]
     Active Substance: ELASOMERAN
     Indication: COVID-19 immunisation
     Dosage: ONE IN ONCE FREQUENCY ?FIRST DOSE
     Route: 030
     Dates: start: 2021, end: 2021
  4. MODERNA COVID-19 VACCINE [Concomitant]
     Active Substance: ELASOMERAN
     Indication: COVID-19 immunisation
     Dosage: ONE IN ONCE FREQUENCY ?SECOND DOSE
     Route: 030
     Dates: start: 2021, end: 2021
  5. MODERNA COVID-19 VACCINE [Concomitant]
     Active Substance: ELASOMERAN
     Indication: COVID-19 immunisation
     Dosage: 3RD BOOSTER DOSE
     Route: 030

REACTIONS (10)
  - Diarrhoea [Recovered/Resolved]
  - Stomatitis [Recovering/Resolving]
  - Headache [Recovered/Resolved]
  - Neuropathy peripheral [Recovering/Resolving]
  - Somnolence [Unknown]
  - Glaucoma [Not Recovered/Not Resolved]
  - Memory impairment [Unknown]
  - Visual impairment [Not Recovered/Not Resolved]
  - Respiratory disorder [Recovering/Resolving]
  - Fatigue [Not Recovered/Not Resolved]
